FAERS Safety Report 8497236-X (Version None)
Quarter: 2012Q3

REPORT INFORMATION
  Report Type: 
  Country: None (occurrence: None)
  Receive Date: 20120709
  Receipt Date: 20120604
  Transmission Date: 20120928
  Serious: No
  Sender: FDA-Public Use
  Company Number: US-AMGEN-USASP2012034776

PATIENT
  Age: 60 Year
  Sex: Female

DRUGS (6)
  1. LORTAB [Concomitant]
     Dosage: UNK
  2. ZOLPIDEM [Concomitant]
     Dosage: UNK
  3. CARISOPRODOL [Concomitant]
     Dosage: UNK
  4. ENBREL [Suspect]
     Indication: PSORIASIS
     Dosage: 50 MG, QWK
     Dates: start: 20120501
  5. ALPRAZOLAM [Concomitant]
     Dosage: UNK
  6. ESTRADIOL [Concomitant]
     Dosage: UNK

REACTIONS (2)
  - PSORIASIS [None]
  - DRY MOUTH [None]
